FAERS Safety Report 23180663 (Version 1)
Quarter: 2023Q4

REPORT INFORMATION
  Report Type: Spontaneous
  Country: US (occurrence: None)
  Receive Date: 20231114
  Receipt Date: 20231114
  Transmission Date: 20240109
  Serious: No
  Sender: FDA-Public Use
  Company Number: 2023A250116

PATIENT

DRUGS (1)
  1. BREZTRI [Suspect]
     Active Substance: BUDESONIDE\FORMOTEROL\GLYCOPYRROLATE
     Route: 055

REACTIONS (5)
  - Chronic obstructive pulmonary disease [Unknown]
  - Memory impairment [Unknown]
  - Off label use of device [Unknown]
  - Incorrect dose administered by device [Unknown]
  - Device delivery system issue [Unknown]
